FAERS Safety Report 9938232 (Version 1)
Quarter: 2014Q1

REPORT INFORMATION
  Report Type: Report from Study
  Country: US (occurrence: US)
  Receive Date: 20140303
  Receipt Date: 20140303
  Transmission Date: 20141002
  Serious: No
  Sender: FDA-Public Use
  Company Number: US-ABBVIE-13P-163-1031006-00

PATIENT
  Sex: Female
  Weight: 90.8 kg

DRUGS (8)
  1. HUMIRA [Suspect]
     Indication: RHEUMATOID ARTHRITIS
  2. PLAQUENIL [Concomitant]
     Indication: RHEUMATOID ARTHRITIS
  3. KEPPRA [Concomitant]
     Indication: EPILEPSY
  4. DIURETICS [Concomitant]
     Indication: PRODUCT USED FOR UNKNOWN INDICATION
  5. CYMBALTA [Concomitant]
     Indication: RHEUMATOID ARTHRITIS
  6. XANAX [Concomitant]
     Indication: ANXIETY
  7. VITAMIN D NOS [Concomitant]
     Indication: SUPPLEMENTATION THERAPY
  8. UNKNOWN MEDICATION [Concomitant]
     Indication: OSTEOPOROSIS PROPHYLAXIS

REACTIONS (17)
  - Swelling [Not Recovered/Not Resolved]
  - Rheumatoid arthritis [Not Recovered/Not Resolved]
  - Malaise [Recovered/Resolved]
  - Nightmare [Recovered/Resolved]
  - Fatigue [Not Recovered/Not Resolved]
  - Pain [Unknown]
  - Musculoskeletal stiffness [Not Recovered/Not Resolved]
  - Hypokinesia [Not Recovered/Not Resolved]
  - Skin lesion [Recovered/Resolved]
  - Rash pustular [Recovered/Resolved]
  - Scar [Not Recovered/Not Resolved]
  - Escherichia infection [Recovered/Resolved]
  - Urinary tract infection [Recovered/Resolved]
  - Skin ulcer [Unknown]
  - Rash generalised [Unknown]
  - Lung infection [Recovered/Resolved]
  - Urinary tract infection [Recovered/Resolved]
